FAERS Safety Report 19303475 (Version 1)
Quarter: 2021Q2

REPORT INFORMATION
  Report Type: Other
  Country: CA (occurrence: CA)
  Receive Date: 20210525
  Receipt Date: 20210525
  Transmission Date: 20210717
  Serious: Yes (Hospitalization, Other)
  Sender: FDA-Public Use
  Company Number: CA-APOTEX-2021AP012221

PATIENT
  Age: 62 Year
  Sex: Female

DRUGS (2)
  1. CEFPROZIL. [Suspect]
     Active Substance: CEFPROZIL
     Indication: SKIN INFECTION
     Dosage: UNK
     Route: 065
  2. IXAZOMIB [Suspect]
     Active Substance: IXAZOMIB
     Indication: PLASMA CELL MYELOMA
     Dosage: 40 MILLIGRAM
     Route: 048

REACTIONS (3)
  - Hypothyroidism [Unknown]
  - Skin infection [Unknown]
  - Diarrhoea [Unknown]
